FAERS Safety Report 12758342 (Version 1)
Quarter: 2016Q3

REPORT INFORMATION
  Report Type: Spontaneous
  Country: US (occurrence: US)
  Receive Date: 20160916
  Receipt Date: 20160916
  Transmission Date: 20161109
  Serious: No
  Sender: FDA-Public Use
  Company Number: None

PATIENT
  Age: 45 Year
  Sex: Female

DRUGS (1)
  1. HYOSCYAMINE. [Suspect]
     Active Substance: HYOSCYAMINE
     Dosage: OTHER STRENGTH:;OTHER DOSE:;OTHER FREQUENCY:Q6H;OTHER ROUTE:
     Route: 048
     Dates: start: 20160516

REACTIONS (3)
  - Heart rate irregular [None]
  - Heart rate increased [None]
  - Product use issue [None]
